FAERS Safety Report 8499599 (Version 4)
Quarter: 2012Q4

REPORT INFORMATION
  Report Type: 
  Country: US (occurrence: US)
  Receive Date: 20120409
  Receipt Date: 20120904
  Transmission Date: 20130627
  Serious: Yes (Hospitalization)
  Sender: FDA-Public Use
  Company Number: US-BAYER-2012-031191

PATIENT
  Age: 28 Year
  Sex: Female
  Weight: 74.83 kg

DRUGS (9)
  1. YAZ [Suspect]
     Indication: CONTRACEPTION
     Dosage: UNK
     Dates: start: 200701, end: 200903
  2. YAZ [Suspect]
     Indication: ACNE
  3. VALTREX [Concomitant]
     Dosage: 1 gram take 2 tablets now then 2 tablets in 12 hours
     Route: 048
     Dates: start: 20081229, end: 20090209
  4. CLINDAMYCIN [Concomitant]
     Dosage: 300 mg, BID
     Route: 048
     Dates: start: 20090223
  5. ACETAMINOPHEN W/CODEINE [Concomitant]
     Dosage: Take 1-2 tablets every 4-6 hours as needed
     Route: 048
     Dates: start: 20090223
  6. MEDROL [Concomitant]
     Dosage: UNK
     Dates: start: 200812
  7. CELEBREX [Concomitant]
  8. AUGMENTIN [Concomitant]
  9. DOXYCYCLINE [Concomitant]

REACTIONS (1)
  - Pulmonary embolism [None]
